FAERS Safety Report 14017829 (Version 1)
Quarter: 2017Q3

REPORT INFORMATION
  Report Type: Spontaneous
  Country: US (occurrence: None)
  Receive Date: 20170927
  Receipt Date: 20170927
  Transmission Date: 20171128
  Serious: Yes (Other)
  Sender: FDA-Public Use
  Company Number: None

PATIENT
  Age: 34 Year
  Sex: Male

DRUGS (1)
  1. DESVENLAFAXINE 50MG [Suspect]
     Active Substance: DESVENLAFAXINE
     Indication: DEPRESSION
     Route: 048
     Dates: start: 20170812, end: 20170813

REACTIONS (14)
  - Mydriasis [None]
  - Dyspnoea [None]
  - Hyperhidrosis [None]
  - Photophobia [None]
  - Musculoskeletal stiffness [None]
  - Poisoning [None]
  - Burning sensation [None]
  - Balance disorder [None]
  - Headache [None]
  - Priapism [None]
  - Myalgia [None]
  - Dizziness [None]
  - Affect lability [None]
  - Cognitive disorder [None]

NARRATIVE: CASE EVENT DATE: 20170812
